FAERS Safety Report 7474861-6 (Version None)
Quarter: 2011Q2

REPORT INFORMATION
  Report Type: 
  Country: None (occurrence: None)
  Receive Date: 20110512
  Receipt Date: 20110408
  Transmission Date: 20111010
  Serious: Yes (Hospitalization, Other)
  Sender: FDA-Public Use
  Company Number: US-BAYER-200935802NA

PATIENT
  Age: 41 Year
  Sex: Female
  Weight: 59.41 kg

DRUGS (5)
  1. MAALOX [CALCIUM CARBONATE] [Concomitant]
  2. YAZ [Suspect]
     Indication: MENOPAUSE
     Dosage: UNK
  3. IBUPROFEN [Concomitant]
  4. NASONEX [Concomitant]
     Route: 045
  5. YASMIN [Suspect]
     Indication: MENOPAUSE
     Dosage: UNK

REACTIONS (1)
  - PULMONARY EMBOLISM [None]
